FAERS Safety Report 6442338 (Version 3)
Quarter: 2018Q4

REPORT INFORMATION
  Report Type: Spontaneous
  Country: IT (occurrence: IT)
  Receive Date: 20071015
  Receipt Date: 20181217
  Transmission Date: 20190205
  Serious: Yes (Hospitalization)
  Sender: FDA-Public Use
  Company Number: IT-ROCHE-522812

PATIENT
  Age: 70 Year
  Sex: Male

DRUGS (8)
  1. ROCEFIN [Suspect]
     Active Substance: CEFTRIAXONE SODIUM
     Indication: ANTIBIOTIC PROPHYLAXIS
     Dosage: FORM REPORTED AS VIAL.
     Route: 042
     Dates: start: 20070926, end: 20070928
  2. TACHIDOL [Concomitant]
     Active Substance: ACETAMINOPHEN\CODEINE PHOSPHATE
     Route: 065
  3. GARDENALE [Suspect]
     Active Substance: PHENOBARBITAL
     Route: 065
     Dates: start: 20070928, end: 20070930
  4. COTAREG [Concomitant]
     Active Substance: HYDROCHLOROTHIAZIDE\VALSARTAN
     Route: 065
  5. LANSOX [Concomitant]
     Active Substance: LANSOPRAZOLE
     Route: 065
  6. FRAXIPARINA [Concomitant]
     Active Substance: NADROPARIN CALCIUM
     Dosage: FORM: VIAL?STRENGTH: 3800 IU/0.4 ML
     Route: 065
  7. DINTOINA [Suspect]
     Active Substance: PHENYTOIN SODIUM
     Indication: SEIZURE
     Route: 065
     Dates: start: 20070926, end: 20070928
  8. GARDENALE [Suspect]
     Active Substance: PHENOBARBITAL
     Indication: SEIZURE
     Route: 065
     Dates: start: 20070925, end: 20070925

REACTIONS (1)
  - Erythema multiforme [Recovered/Resolved]

NARRATIVE: CASE EVENT DATE: 20070927
